FAERS Safety Report 22369507 (Version 3)
Quarter: 2025Q4

REPORT INFORMATION
  Report Type: Report from Study
  Country: CA (occurrence: CA)
  Receive Date: 20230526
  Receipt Date: 20251118
  Transmission Date: 20260117
  Serious: Yes (Other)
  Sender: BIOGEN
  Company Number: CA-BIOGEN-2023BI01206856

PATIENT
  Age: 46 Year
  Sex: Female

DRUGS (11)
  1. TYSABRI [Suspect]
     Active Substance: NATALIZUMAB
     Indication: Multiple sclerosis
     Dates: start: 20230329
  2. TYSABRI [Suspect]
     Active Substance: NATALIZUMAB
     Route: 042
  3. TYSABRI [Suspect]
     Active Substance: NATALIZUMAB
     Dates: start: 20230329
  4. TYSABRI [Suspect]
     Active Substance: NATALIZUMAB
     Dates: start: 20230329
  5. TYSABRI [Suspect]
     Active Substance: NATALIZUMAB
     Dates: start: 20230329
  6. TYSABRI [Suspect]
     Active Substance: NATALIZUMAB
     Dates: start: 20230329
  7. TYSABRI [Suspect]
     Active Substance: NATALIZUMAB
  8. TYSABRI [Suspect]
     Active Substance: NATALIZUMAB
     Dates: start: 20230329
  9. TYSABRI [Suspect]
     Active Substance: NATALIZUMAB
     Route: 042
     Dates: start: 20230323
  10. TYSABRI [Suspect]
     Active Substance: NATALIZUMAB
     Dates: start: 20230323
  11. TYSABRI [Suspect]
     Active Substance: NATALIZUMAB
     Dates: start: 20230323

REACTIONS (43)
  - Intervertebral disc injury [Unknown]
  - Cognitive disorder [Unknown]
  - Musculoskeletal disorder [Unknown]
  - Mobility decreased [Unknown]
  - Headache [Not Recovered/Not Resolved]
  - Intervertebral disc protrusion [Not Recovered/Not Resolved]
  - Asthenia [Unknown]
  - Dysstasia [Unknown]
  - Multiple sclerosis relapse [Not Recovered/Not Resolved]
  - Neurological symptom [Not Recovered/Not Resolved]
  - Intervertebral disc degeneration [Not Recovered/Not Resolved]
  - Arthralgia [Recovered/Resolved]
  - Back pain [Recovered/Resolved]
  - Fall [Recovered/Resolved]
  - Gait disturbance [Unknown]
  - Paraesthesia [Unknown]
  - Muscle spasms [Recovered/Resolved]
  - Multiple sclerosis [Not Recovered/Not Resolved]
  - Hallucination, tactile [Unknown]
  - Muscular weakness [Not Recovered/Not Resolved]
  - Bradykinesia [Not Recovered/Not Resolved]
  - Sciatica [Not Recovered/Not Resolved]
  - Disturbance in attention [Not Recovered/Not Resolved]
  - Memory impairment [Not Recovered/Not Resolved]
  - Skin lesion [Unknown]
  - Abdominal pain upper [Not Recovered/Not Resolved]
  - Nausea [Not Recovered/Not Resolved]
  - Triplopia [Not Recovered/Not Resolved]
  - Vestibular disorder [Not Recovered/Not Resolved]
  - Musculoskeletal stiffness [Recovered/Resolved]
  - Disorientation [Not Recovered/Not Resolved]
  - Hunger [Not Recovered/Not Resolved]
  - Balance disorder [Not Recovered/Not Resolved]
  - Aphasia [Unknown]
  - Prescribed underdose [Unknown]
  - General physical health deterioration [Unknown]
  - Malaise [Not Recovered/Not Resolved]
  - Impaired gastric emptying [Not Recovered/Not Resolved]
  - Motor dysfunction [Unknown]
  - Stress urinary incontinence [Unknown]
  - Fatigue [Unknown]
  - Gastrointestinal disorder [Unknown]
  - Coeliac artery compression syndrome [Unknown]

NARRATIVE: CASE EVENT DATE: 20230329
